FAERS Safety Report 18461155 (Version 2)
Quarter: 2020Q4

REPORT INFORMATION
  Report Type: Spontaneous
  Country: JP (occurrence: JP)
  Receive Date: 20201104
  Receipt Date: 20201120
  Transmission Date: 20210114
  Serious: Yes (Hospitalization, Other)
  Sender: FDA-Public Use
  Company Number: JP-AMGEN-JPNSP2020175539

PATIENT
  Sex: Female
  Weight: 38 kg

DRUGS (2)
  1. EVENITY [Suspect]
     Active Substance: ROMOSOZUMAB-AQQG
     Indication: OSTEOPOROSIS
     Dosage: 210 MILLIGRAM, QMO
     Route: 065
     Dates: start: 20190913
  2. TERIPARATIDE [Concomitant]
     Active Substance: TERIPARATIDE
     Dosage: UNK UNK, QD
     Route: 058

REACTIONS (2)
  - Fall [Unknown]
  - Femoral neck fracture [Not Recovered/Not Resolved]

NARRATIVE: CASE EVENT DATE: 20190920
